FAERS Safety Report 21579764 (Version 2)
Quarter: 2022Q4

REPORT INFORMATION
  Report Type: Spontaneous
  Country: US (occurrence: US)
  Receive Date: 20221110
  Receipt Date: 20221122
  Transmission Date: 20230112
  Serious: No
  Sender: FDA-Public Use
  Company Number: US-PFIZER INC-202201287011

PATIENT
  Age: 79 Year
  Sex: Male
  Weight: 79.38 kg

DRUGS (1)
  1. TIKOSYN [Suspect]
     Active Substance: DOFETILIDE
     Indication: Atrial fibrillation
     Dosage: 250 MG
     Dates: start: 2019, end: 20220723

REACTIONS (1)
  - Wrong strength [Unknown]

NARRATIVE: CASE EVENT DATE: 20190101
